FAERS Safety Report 12480344 (Version 4)
Quarter: 2020Q3

REPORT INFORMATION
  Report Type: Spontaneous
  Country: ES (occurrence: ES)
  Receive Date: 20160620
  Receipt Date: 20190302
  Transmission Date: 20201105
  Serious: Yes (Other)
  Sender: FDA-Public Use
  Company Number: ES-SUN PHARMACEUTICAL INDUSTRIES LTD-2016RR-118735

PATIENT
  Age: 51 Year
  Sex: Female

DRUGS (2)
  1. IBANDRONIC ACID. [Suspect]
     Active Substance: IBANDRONIC ACID
     Indication: SPINAL FRACTURE
     Dosage: UNK
     Route: 065
  2. PREDNISONE. [Suspect]
     Active Substance: PREDNISONE
     Indication: PRODUCT USED FOR UNKNOWN INDICATION
     Dosage: INTERMITTENT WITH DOSES 1?2.5 MG/KG/DAY
     Route: 065

REACTIONS (2)
  - Spinal fracture [Unknown]
  - Iridocyclitis [Recovering/Resolving]
